FAERS Safety Report 9825052 (Version 3)
Quarter: 2014Q1

REPORT INFORMATION
  Report Type: Spontaneous
  Country: SE (occurrence: SE)
  Receive Date: 20140117
  Receipt Date: 20140219
  Transmission Date: 20141002
  Serious: Yes (Other)
  Sender: FDA-Public Use
  Company Number: SE-AMGEN-SWESP2014001978

PATIENT
  Age: 60 Year
  Sex: Male
  Weight: 79 kg

DRUGS (3)
  1. ARANESP [Suspect]
     Indication: NEPHROGENIC ANAEMIA
     Dosage: 300 MUG, QWK
     Route: 042
     Dates: start: 20080911, end: 20140110
  2. PREDNISOLON                        /00016201/ [Concomitant]
     Indication: SYSTEMIC LUPUS ERYTHEMATOSUS
     Dosage: 20 MG, X 1
     Route: 048
     Dates: start: 20091112
  3. PLAQUENIL                          /00072602/ [Concomitant]
     Indication: SYSTEMIC LUPUS ERYTHEMATOSUS
     Dosage: 200 MG, X 1
     Route: 048
     Dates: start: 20111027, end: 20120706

REACTIONS (8)
  - Aplastic anaemia [Unknown]
  - Klebsiella infection [Unknown]
  - Aplasia pure red cell [Not Recovered/Not Resolved]
  - Drug ineffective [Unknown]
  - Asthenia [Unknown]
  - Fatigue [Unknown]
  - Dyspnoea exertional [Unknown]
  - Oedema [Unknown]
